FAERS Safety Report 4350356-3 (Version None)
Quarter: 2004Q2

REPORT INFORMATION
  Report Type: 
  Country: None (occurrence: None)
  Receive Date: 20040409
  Receipt Date: 20040311
  Transmission Date: 20050107
  Serious: No
  Sender: FDA-Public Use
  Company Number: PHEH2004US02960

PATIENT
  Age: 6 Year
  Sex: Female

DRUGS (4)
  1. ELIDEL [Suspect]
     Indication: ECZEMA
     Dosage: TID, TOPICAL
     Route: 061
     Dates: start: 20040303, end: 20040308
  2. SINGULAIR [Concomitant]
  3. XOPENEX [Concomitant]
  4. ALLEGRA [Concomitant]

REACTIONS (3)
  - CONDITION AGGRAVATED [None]
  - DRUG INEFFECTIVE [None]
  - TINEA INFECTION [None]
